FAERS Safety Report 16179175 (Version 1)
Quarter: 2019Q2

REPORT INFORMATION
  Report Type: Spontaneous
  Country: IN (occurrence: IN)
  Receive Date: 20190410
  Receipt Date: 20190410
  Transmission Date: 20190711
  Serious: Yes (Other)
  Sender: FDA-Public Use
  Company Number: IN-TORRENT-00002188

PATIENT
  Age: 6 Year
  Sex: Male

DRUGS (6)
  1. OLANZAPINE. [Suspect]
     Active Substance: OLANZAPINE
     Indication: PRODUCT USED FOR UNKNOWN INDICATION
  2. OXCARBAZEPINE. [Concomitant]
     Active Substance: OXCARBAZEPINE
     Indication: PRODUCT USED FOR UNKNOWN INDICATION
  3. CLONIDINE. [Suspect]
     Active Substance: CLONIDINE
     Indication: PSYCHOMOTOR HYPERACTIVITY
  4. SODIUM VALPROATE [Concomitant]
     Active Substance: VALPROATE SODIUM
     Indication: PRODUCT USED FOR UNKNOWN INDICATION
  5. CLOBAZARN [Concomitant]
     Indication: PRODUCT USED FOR UNKNOWN INDICATION
  6. ATOMOXETINE. [Concomitant]
     Active Substance: ATOMOXETINE HYDROCHLORIDE
     Indication: PSYCHOMOTOR HYPERACTIVITY

REACTIONS (4)
  - Somnolence [Unknown]
  - Product use issue [Unknown]
  - Psychotic disorder [Recovered/Resolved]
  - Withdrawal syndrome [Unknown]
